FAERS Safety Report 12936700 (Version 1)
Quarter: 2016Q4

REPORT INFORMATION
  Report Type: Spontaneous
  Country: JP (occurrence: JP)
  Receive Date: 20161114
  Receipt Date: 20161114
  Transmission Date: 20170207
  Serious: Yes (Other)
  Sender: FDA-Public Use
  Company Number: JP-GLAXOSMITHKLINE-JP2016JPN163952

PATIENT
  Age: 56 Year
  Sex: Male

DRUGS (6)
  1. ZOVIRAX [Suspect]
     Active Substance: ACYCLOVIR
     Dosage: UNK
     Route: 061
  2. PREDONINE [Concomitant]
     Active Substance: PREDNISOLONE\PREDNISOLONE ACETATE\PREDNISOLONE SODIUM SUCCINATE
     Dosage: 20 MG, 1D
  3. RINDERON A [Concomitant]
     Active Substance: BETAMETHASONE SODIUM PHOSPHATE\NEOMYCIN SULFATE
     Dosage: UNK, QID
  4. GATIFLO [Concomitant]
     Active Substance: GATIFLOXACIN
     Dosage: UNK, QID
  5. VALTREX [Suspect]
     Active Substance: VALACYCLOVIR HYDROCHLORIDE
     Dosage: 3000 MG, 1D
     Route: 048
  6. FLUMETHOLON [Concomitant]
     Active Substance: FLUOROMETHOLONE
     Dosage: UNK

REACTIONS (9)
  - Keratitis bacterial [Unknown]
  - Corneal infiltrates [Unknown]
  - Anterior chamber inflammation [Unknown]
  - Corneal disorder [Unknown]
  - Ciliary hyperaemia [Unknown]
  - Hypopyon [Unknown]
  - Corneal oedema [Unknown]
  - Corneal scar [Unknown]
  - Corneal abscess [Unknown]
